FAERS Safety Report 8439685-1 (Version None)
Quarter: 2012Q2

REPORT INFORMATION
  Report Type: 
  Country: None (occurrence: None)
  Receive Date: 20120615
  Receipt Date: 20120613
  Transmission Date: 20120825
  Serious: No
  Sender: FDA-Public Use
  Company Number: US-PFIZER INC-2012142735

PATIENT
  Sex: Female

DRUGS (3)
  1. LYRICA [Suspect]
     Indication: FATIGUE
     Dosage: UNK
     Dates: start: 20120101
  2. LYRICA [Suspect]
     Indication: ASTHENIA
  3. LYRICA [Suspect]
     Indication: PARAESTHESIA

REACTIONS (1)
  - OFF LABEL USE [None]
